FAERS Safety Report 20559775 (Version 1)
Quarter: 2022Q1

REPORT INFORMATION
  Report Type: Spontaneous
  Country: US (occurrence: None)
  Receive Date: 20220304
  Receipt Date: 20220304
  Transmission Date: 20220423
  Serious: Yes (Other)
  Sender: FDA-Public Use
  Company Number: None

PATIENT
  Age: 61 Year
  Sex: Female
  Weight: 69.75 kg

DRUGS (5)
  1. PAXLOVID [Suspect]
     Active Substance: NIRMATRELVIR\RITONAVIR
     Indication: COVID-19
     Dosage: FREQUENCY : TWICE A DAY;?
     Route: 048
     Dates: start: 20220302
  2. azithromycin (from outside US) [Concomitant]
     Dates: start: 20220227
  3. CLARITIN [Concomitant]
     Active Substance: LORATADINE
  4. robitussin q8h prn cough [Concomitant]
  5. Vick Vapor Rub, topically [Concomitant]

REACTIONS (5)
  - Malaise [None]
  - Headache [None]
  - Paraesthesia [None]
  - Hypoaesthesia [None]
  - Chest pain [None]

NARRATIVE: CASE EVENT DATE: 20220304
